FAERS Safety Report 25510319 (Version 1)
Quarter: 2025Q3

REPORT INFORMATION
  Report Type: Spontaneous
  Country: US (occurrence: US)
  Receive Date: 20250703
  Receipt Date: 20250703
  Transmission Date: 20251021
  Serious: Yes (Hospitalization)
  Sender: MERCK SHARP & DOHME LLC
  Company Number: US-009507513-2299692

PATIENT
  Age: 75 Year
  Sex: Male

DRUGS (13)
  1. KEYTRUDA [Suspect]
     Active Substance: PEMBROLIZUMAB
     Indication: Pleomorphic liposarcoma
     Dosage: UNK (Q6WEEKS)
     Route: 042
     Dates: start: 20250418
  2. CABOMETYX [Suspect]
     Active Substance: CABOZANTINIB S-MALATE
     Indication: Pleomorphic liposarcoma
     Dates: start: 20250421
  3. CABOMETYX [Suspect]
     Active Substance: CABOZANTINIB S-MALATE
     Indication: Pleomorphic liposarcoma
     Dosage: 40 MG, QOD
     Dates: start: 20250430, end: 20250514
  4. ZOVIRAX [Concomitant]
     Active Substance: ACYCLOVIR
  5. LIPITOR [Concomitant]
     Active Substance: ATORVASTATIN CALCIUM
  6. ZEBETA [Concomitant]
     Active Substance: BISOPROLOL FUMARATE
  7. DESVENLAFAXINE [Concomitant]
     Active Substance: DESVENLAFAXINE
  8. LAMICTAL [Concomitant]
     Active Substance: LAMOTRIGINE
  9. SYNTHROID [Concomitant]
     Active Substance: LEVOTHYROXINE SODIUM
  10. PAMELOR [Concomitant]
     Active Substance: NORTRIPTYLINE HYDROCHLORIDE
  11. PRILOSEC [Concomitant]
     Active Substance: OMEPRAZOLE MAGNESIUM
  12. VITAMINS [Concomitant]
     Active Substance: VITAMINS
  13. REXULTI [Concomitant]
     Active Substance: BREXPIPRAZOLE

REACTIONS (6)
  - Metabolic acidosis [Recovered/Resolved]
  - Acute kidney injury [Recovered/Resolved]
  - Diarrhoea [Recovered/Resolved]
  - Dehydration [Recovered/Resolved]
  - Off label use [Unknown]
  - Drug intolerance [Unknown]

NARRATIVE: CASE EVENT DATE: 20250101
